FAERS Safety Report 7522621 (Version 56)
Quarter: 2017Q3

REPORT INFORMATION
  Report Type: Report from Study
  Country: CA (occurrence: CA)
  Receive Date: 20100803
  Receipt Date: 20170721
  Transmission Date: 20171128
  Serious: Yes (Hospitalization, Other)
  Sender: FDA-Public Use
  Company Number: PHHY2010CA48349

PATIENT
  Age: 49 Year
  Sex: Female

DRUGS (15)
  1. SANDOSTATIN LAR DEPOT [Suspect]
     Active Substance: OCTREOTIDE ACETATE
     Dosage: 20 MG, EVERY 3 WEEKS
     Route: 065
     Dates: start: 20170303
  2. CORTISONE [Concomitant]
     Active Substance: CORTISONE\HYDROCORTISONE
     Indication: PRODUCT USED FOR UNKNOWN INDICATION
     Dosage: UNK
     Route: 065
  3. SANDOSTATIN LAR DEPOT [Suspect]
     Active Substance: OCTREOTIDE ACETATE
     Indication: NIEMANN-PICK DISEASE
     Dosage: 10 MG, QMO (ONCE A MONTH)
     Route: 030
     Dates: start: 20100721
  4. INDERAL [Concomitant]
     Active Substance: PROPRANOLOL HYDROCHLORIDE
     Indication: PRODUCT USED FOR UNKNOWN INDICATION
     Dosage: UNK
     Route: 065
  5. SANDOSTATIN LAR DEPOT [Suspect]
     Active Substance: OCTREOTIDE ACETATE
     Dosage: 20 MG, QMO (ONCE A MONTH)
     Route: 030
  6. CORTEF [Concomitant]
     Active Substance: HYDROCORTISONE
     Dosage: 10 MG, TID
     Route: 048
  7. CORTEF [Concomitant]
     Active Substance: HYDROCORTISONE
     Indication: PRODUCT USED FOR UNKNOWN INDICATION
     Dosage: 1 MG, QD
     Route: 048
  8. TEMAZEPAM. [Concomitant]
     Active Substance: TEMAZEPAM
     Indication: PRODUCT USED FOR UNKNOWN INDICATION
     Dosage: 15 MG, QD
     Route: 048
  9. SANDOSTATIN [Suspect]
     Active Substance: OCTREOTIDE ACETATE
     Indication: NIEMANN-PICK DISEASE
     Dosage: 100 UG, BID
     Route: 058
     Dates: start: 201001, end: 201008
  10. CORTEF [Concomitant]
     Active Substance: HYDROCORTISONE
     Dosage: 3 MG, UNK
     Route: 048
  11. SANDOSTATIN LAR DEPOT [Suspect]
     Active Substance: OCTREOTIDE ACETATE
     Dosage: 20 MG, Q 25 DAYS
     Route: 030
  12. SANDOSTATIN LAR DEPOT [Suspect]
     Active Substance: OCTREOTIDE ACETATE
     Dosage: 20 MG, QMO (ONCE A MONTH)
     Route: 065
  13. TRAZODONE [Concomitant]
     Active Substance: TRAZODONE HYDROCHLORIDE
     Indication: PRODUCT USED FOR UNKNOWN INDICATION
     Dosage: 100 MG, QD
     Route: 048
  14. ALENDRONATE [Concomitant]
     Active Substance: ALENDRONATE SODIUM
     Indication: PRODUCT USED FOR UNKNOWN INDICATION
     Dosage: 70 MG, QW
     Route: 048
  15. SANDOSTATIN LAR DEPOT [Suspect]
     Active Substance: OCTREOTIDE ACETATE
     Dosage: 20 MG, Q 25 DAYS
     Route: 065
     Dates: start: 20160606, end: 20170210

REACTIONS (69)
  - Chills [Not Recovered/Not Resolved]
  - Abdominal pain [Not Recovered/Not Resolved]
  - Loss of consciousness [Unknown]
  - Abdominal hernia [Unknown]
  - Anaemia [Unknown]
  - Feeling abnormal [Unknown]
  - Pain [Unknown]
  - Epistaxis [Unknown]
  - Malaise [Unknown]
  - Vertigo [Unknown]
  - Back pain [Recovered/Resolved]
  - Nasopharyngitis [Unknown]
  - Nausea [Recovering/Resolving]
  - Injection site discomfort [Unknown]
  - Abdominal pain upper [Not Recovered/Not Resolved]
  - Fatigue [Unknown]
  - Injection site pain [Recovered/Resolved]
  - Dyspnoea [Unknown]
  - Injection site pain [Unknown]
  - Procedural pain [Unknown]
  - Blood pressure increased [Unknown]
  - Hernia pain [Unknown]
  - Tremor [Unknown]
  - Salivary hypersecretion [Unknown]
  - Paraesthesia [Unknown]
  - Oral discomfort [Unknown]
  - Body temperature decreased [Unknown]
  - Migraine [Unknown]
  - Abdominal discomfort [Unknown]
  - Hypophagia [Unknown]
  - Asthenia [Unknown]
  - Dizziness [Unknown]
  - Injection site pain [Recovered/Resolved]
  - Constipation [Not Recovered/Not Resolved]
  - Eating disorder [Not Recovered/Not Resolved]
  - Hyperhidrosis [Unknown]
  - Myalgia [Unknown]
  - Influenza [Unknown]
  - Insomnia [Not Recovered/Not Resolved]
  - Musculoskeletal pain [Unknown]
  - Chest discomfort [Unknown]
  - Oesophageal ulcer [Unknown]
  - Movement disorder [Unknown]
  - Vomiting [Unknown]
  - Blood pressure systolic increased [Unknown]
  - Burning sensation [Unknown]
  - Pain in extremity [Unknown]
  - Anxiety [Unknown]
  - Stress [Unknown]
  - Food craving [Unknown]
  - Fall [Unknown]
  - Osteoarthritis [Unknown]
  - Cardiac disorder [Not Recovered/Not Resolved]
  - Skin sensitisation [Unknown]
  - Decreased appetite [Unknown]
  - Inappropriate schedule of drug administration [Unknown]
  - Product use in unapproved indication [Unknown]
  - Blood pressure decreased [Unknown]
  - Feeling cold [Unknown]
  - Oral pain [Unknown]
  - Nightmare [Unknown]
  - Arthralgia [Unknown]
  - Feeling hot [Unknown]
  - Haemoptysis [Unknown]
  - Balance disorder [Unknown]
  - Weight decreased [Unknown]
  - Back pain [Unknown]
  - Headache [Unknown]
  - Injection site paraesthesia [Unknown]

NARRATIVE: CASE EVENT DATE: 20100721
